FAERS Safety Report 6678214-X (Version None)
Quarter: 2010Q2

REPORT INFORMATION
  Report Type: 
  Country: None (occurrence: None)
  Receive Date: 20100408
  Receipt Date: 20100408
  Transmission Date: 20101027
  Serious: No
  Sender: FDA-Public Use
  Company Number: None

PATIENT
  Age: 39 Year
  Sex: Male
  Weight: 107.5025 kg

DRUGS (1)
  1. PROPECIA [Suspect]

REACTIONS (3)
  - ERECTILE DYSFUNCTION [None]
  - PENILE SIZE REDUCED [None]
  - SEMEN VISCOSITY DECREASED [None]
